FAERS Safety Report 16966065 (Version 2)
Quarter: 2020Q1

REPORT INFORMATION
  Report Type: Spontaneous
  Country: US (occurrence: US)
  Receive Date: 20191028
  Receipt Date: 20200108
  Transmission Date: 20200409
  Serious: No
  Sender: FDA-Public Use
  Company Number: US-PFIZER INC-2019463077

PATIENT
  Age: 16 Year
  Sex: Male
  Weight: 68.93 kg

DRUGS (2)
  1. EUCRISA [Suspect]
     Active Substance: CRISABOROLE
     Indication: DERMATITIS ATOPIC
     Dosage: APPLY TO AFFECTED AREA TWICE A DAY
     Route: 061
     Dates: start: 201910, end: 201910
  2. EUCRISA [Suspect]
     Active Substance: CRISABOROLE
     Indication: ECZEMA

REACTIONS (1)
  - Application site pain [Recovered/Resolved]

NARRATIVE: CASE EVENT DATE: 201910
